FAERS Safety Report 7368455-0 (Version None)
Quarter: 2011Q1

REPORT INFORMATION
  Report Type: 
  Country: None (occurrence: None)
  Receive Date: 20110323
  Receipt Date: 20110309
  Transmission Date: 20110831
  Serious: Yes (Hospitalization)
  Sender: FDA-Public Use
  Company Number: FR-JNJFOC-20110305110

PATIENT
  Age: 45 Year
  Sex: Male

DRUGS (3)
  1. REMICADE [Suspect]
     Indication: PRODUCT USED FOR UNKNOWN INDICATION
     Route: 042
  2. IDEOS [Concomitant]
     Route: 048
  3. PENTASA [Concomitant]
     Route: 048

REACTIONS (2)
  - OROPHARYNGEAL PAIN [None]
  - DISSEMINATED TUBERCULOSIS [None]
